FAERS Safety Report 19519710 (Version 2)
Quarter: 2021Q3

REPORT INFORMATION
  Report Type: Spontaneous
  Country: ES (occurrence: ES)
  Receive Date: 20210712
  Receipt Date: 20210721
  Transmission Date: 20211014
  Serious: Yes (Disabling)
  Sender: FDA-Public Use
  Company Number: ES-CURIUM-2021000511

PATIENT
  Age: 45 Year
  Sex: Female

DRUGS (5)
  1. ULTRA?TECHNEKOW FM [Suspect]
     Active Substance: TECHNETIUM TC-99M SODIUM PERTECHNETATE
     Route: 042
     Dates: start: 20210618, end: 20210618
  2. TRILEPTAL 300 [Concomitant]
     Route: 065
     Dates: start: 202010
  3. SPIDIFEN [Concomitant]
     Active Substance: IBUPROFEN ARGININE
     Dosage: AS NEEDED
     Route: 065
  4. DIAZEPAN [Concomitant]
     Active Substance: DIAZEPAM
     Route: 065
     Dates: start: 2018
  5. OSTEOCIS 3 MG EQUIPO DE REACTIVOS PARA PREPARACION RADIOFARMACEUTICA [Suspect]
     Active Substance: TECHNETIUM TC-99M OXIDRONATE
     Route: 042
     Dates: start: 20210618, end: 20210618

REACTIONS (4)
  - Headache [Recovered/Resolved]
  - Arthralgia [Recovered/Resolved]
  - Musculoskeletal stiffness [Recovered/Resolved]
  - Myalgia [Recovered/Resolved]

NARRATIVE: CASE EVENT DATE: 20210619
